FAERS Safety Report 17515902 (Version 8)
Quarter: 2023Q4

REPORT INFORMATION
  Report Type: Report from Study
  Country: JP (occurrence: JP)
  Receive Date: 20200309
  Receipt Date: 20231123
  Transmission Date: 20240110
  Serious: Yes (Hospitalization)
  Sender: FDA-Public Use
  Company Number: JP-ASTELLAS-2020JP001581

PATIENT
  Age: 59 Year
  Sex: Male

DRUGS (15)
  1. ENFORTUMAB VEDOTIN [Suspect]
     Active Substance: ENFORTUMAB VEDOTIN
     Indication: Transitional cell carcinoma
     Dosage: 1.25 MG/KG, DAY 1, DAY8, DAY 15 OF EACH CYCLE OF 28 DAYS
     Route: 042
     Dates: start: 20200115
  2. NIFEDIPINE [Concomitant]
     Active Substance: NIFEDIPINE
     Indication: Transitional cell carcinoma
     Route: 048
     Dates: start: 2004
  3. BELSOMRA [Concomitant]
     Active Substance: SUVOREXANT
     Indication: Insomnia
     Route: 048
     Dates: start: 20191226
  4. LYRICA [Concomitant]
     Active Substance: PREGABALIN
     Indication: Pain
     Route: 048
     Dates: start: 20191226
  5. ZOLPIDEM TARTRATE [Concomitant]
     Active Substance: ZOLPIDEM TARTRATE
     Indication: Insomnia
     Route: 048
     Dates: start: 20200116
  6. HEPARINOID [Concomitant]
     Indication: Drug eruption
     Dosage: 0.3 %, APPLICATION AS NEEDED
     Route: 061
     Dates: start: 20200219
  7. RINDERON V [Concomitant]
     Active Substance: BETAMETHASONE VALERATE
     Indication: Drug eruption
     Dosage: 0.12 %, APPLICATION AS NEEDED
     Route: 061
     Dates: start: 20200226
  8. DIFLUPREDNATE [Concomitant]
     Active Substance: DIFLUPREDNATE
     Indication: Drug eruption
     Dosage: UNK UNK, APPLICATION AS NEEDED
     Route: 061
     Dates: start: 20200304
  9. ZINC OXIDE [Concomitant]
     Active Substance: ZINC OXIDE
     Indication: Drug eruption
     Dosage: UNK UNK, APPLICATION AS NEEDED
     Route: 061
     Dates: start: 20200304
  10. PREDONINE [Concomitant]
     Active Substance: PREDNISOLONE
     Indication: Drug eruption
     Dosage: 15 MG/DAY, UNKNOWN FREQ.
     Route: 048
     Dates: start: 20200304
  11. PREDONINE [Concomitant]
     Active Substance: PREDNISOLONE
     Dosage: 60 MG/DAY, UNKNOWN FREQ.
     Route: 048
  12. PREDONINE [Concomitant]
     Active Substance: PREDNISOLONE
     Dosage: 40 MG/DAY, UNKNOWN FREQ.
     Route: 048
     Dates: start: 20200306, end: 20200309
  13. PREDONINE [Concomitant]
     Active Substance: PREDNISOLONE
     Dosage: 20 MG/DAY, UNKNOWN FREQ.
     Route: 048
     Dates: start: 20200310
  14. VONOPRAZAN FUMARATE [Concomitant]
     Active Substance: VONOPRAZAN FUMARATE
     Indication: Prophylaxis
     Route: 048
     Dates: start: 20200306
  15. MAGNESIUM OXIDE [Concomitant]
     Active Substance: MAGNESIUM OXIDE
     Indication: Constipation
     Route: 048
     Dates: start: 20200309

REACTIONS (3)
  - Drug eruption [Recovered/Resolved]
  - Drug eruption [Recovered/Resolved]
  - Infective spondylitis [Recovering/Resolving]

NARRATIVE: CASE EVENT DATE: 20200122
